FAERS Safety Report 18792342 (Version 1)
Quarter: 2021Q1

REPORT INFORMATION
  Report Type: Spontaneous
  Country: RU (occurrence: RU)
  Receive Date: 20210127
  Receipt Date: 20210127
  Transmission Date: 20210419
  Serious: Yes (Death)
  Sender: FDA-Public Use
  Company Number: RU-BIOGEN-2021BI00970640

PATIENT
  Sex: Female

DRUGS (1)
  1. SPINRAZA [Suspect]
     Active Substance: NUSINERSEN
     Indication: SPINAL MUSCULAR ATROPHY
     Dosage: 12 MG. IN 5 ML, INTRATHECAL INJECTION
     Route: 037
     Dates: start: 20210102

REACTIONS (3)
  - Spinal muscular atrophy [Fatal]
  - Asphyxia [Fatal]
  - Cardiac arrest [Fatal]

NARRATIVE: CASE EVENT DATE: 20210107
